FAERS Safety Report 5816707-5 (Version None)
Quarter: 2008Q3

REPORT INFORMATION
  Report Type: 
  Country: None (occurrence: None)
  Receive Date: 20080721
  Receipt Date: 20080709
  Transmission Date: 20090109
  Serious: Yes (Other)
  Sender: FDA-Public Use
  Company Number: US-PFIZER INC-2008057414

PATIENT
  Sex: Male
  Weight: 115 kg

DRUGS (8)
  1. XANAX [Suspect]
     Indication: ANXIETY
     Dates: start: 20061001, end: 20080615
  2. XANAX [Suspect]
     Indication: PANIC ATTACK
  3. XANAX [Suspect]
     Indication: AGORAPHOBIA
  4. PLAVIX [Concomitant]
  5. EFFEXOR [Concomitant]
  6. TRAZODONE HCL [Concomitant]
  7. DIURETICS [Concomitant]
  8. ALL OTHER THERAPEUTIC PRODUCTS [Concomitant]

REACTIONS (3)
  - ABDOMINAL INFECTION [None]
  - DRUG LEVEL [None]
  - HERNIA HIATUS REPAIR [None]
